FAERS Safety Report 12988650 (Version 1)
Quarter: 2016Q4

REPORT INFORMATION
  Report Type: Spontaneous
  Country: US (occurrence: US)
  Receive Date: 20161130
  Receipt Date: 20161130
  Transmission Date: 20170207
  Serious: Yes (Hospitalization)
  Sender: FDA-Public Use
  Company Number: US-RELYPSA-RLY2016003997

PATIENT
  Age: 63 Year
  Sex: Female

DRUGS (32)
  1. BIOFREEZE [Concomitant]
     Active Substance: MENTHOL
  2. MI-ACID [Concomitant]
  3. KIONEX [Concomitant]
     Active Substance: SODIUM POLYSTYRENE SULFONATE
  4. LYRICA [Concomitant]
     Active Substance: PREGABALIN
  5. DIPHENOXYLATE/ATROPINE [Concomitant]
     Active Substance: ATROPINE\DIPHENOXYLATE
  6. CARBIDOPA-LEVODOPA-B [Concomitant]
     Active Substance: CARBIDOPA\LEVODOPA
  7. SENSIPAR [Concomitant]
     Active Substance: CINACALCET HYDROCHLORIDE
  8. ANTI DIARRHEAL [Concomitant]
     Active Substance: LOPERAMIDE HYDROCHLORIDE
  9. LORATADINE. [Concomitant]
     Active Substance: LORATADINE
  10. CALCIUM ACETATE. [Concomitant]
     Active Substance: CALCIUM ACETATE
  11. SERTRALINE HCL [Concomitant]
     Active Substance: SERTRALINE HYDROCHLORIDE
  12. LEVOTHYROXINE SODIUM. [Concomitant]
     Active Substance: LEVOTHYROXINE SODIUM
  13. METAMUCIL [Concomitant]
     Active Substance: PLANTAGO SEED
  14. PANTOPRAZOLE SODIUM. [Concomitant]
     Active Substance: PANTOPRAZOLE SODIUM
  15. RENVELA [Concomitant]
     Active Substance: SEVELAMER CARBONATE
  16. LANTUS [Suspect]
     Active Substance: INSULIN GLARGINE
  17. PROAIR HFA [Concomitant]
     Active Substance: ALBUTEROL SULFATE
  18. NATURAL BALANCE TEARS [Concomitant]
     Active Substance: HYPROMELLOSE 2910 (3 MPA.S)
  19. ACETAMINOPHEN. [Concomitant]
     Active Substance: ACETAMINOPHEN
  20. AMITIZA [Concomitant]
     Active Substance: LUBIPROSTONE
  21. MIDODRINE HCL [Concomitant]
     Active Substance: MIDODRINE HYDROCHLORIDE
  22. VELTASSA [Suspect]
     Active Substance: PATIROMER
     Indication: HYPERKALAEMIA
     Dosage: 8.4 G, QD
     Route: 048
     Dates: start: 20161028
  23. TRAMADOL HCL [Concomitant]
     Active Substance: TRAMADOL HYDROCHLORIDE
  24. NITROSTAT [Concomitant]
     Active Substance: NITROGLYCERIN
  25. TRAZODONE HYDROCHLORIDE. [Concomitant]
     Active Substance: TRAZODONE HYDROCHLORIDE
  26. WARFARIN SODIUM. [Concomitant]
     Active Substance: WARFARIN SODIUM
  27. ARTIFICIAL TEARS                   /00222401/ [Concomitant]
  28. CLOTRIMAZOLE AND BETAMETHASONE [Concomitant]
     Active Substance: BETAMETHASONE\CLOTRIMAZOLE
  29. FLONASE                            /00908302/ [Concomitant]
     Active Substance: MOMETASONE FUROATE
  30. RENAL [Concomitant]
  31. HUMALOG [Concomitant]
     Active Substance: INSULIN LISPRO
  32. LIDOCAINE AND PRILOCAINE [Concomitant]
     Active Substance: LIDOCAINE\PRILOCAINE

REACTIONS (1)
  - Small intestinal obstruction [Unknown]

NARRATIVE: CASE EVENT DATE: 20161116
